FAERS Safety Report 8695143 (Version 2)
Quarter: 2013Q4

REPORT INFORMATION
  Report Type: Spontaneous
  Country: US (occurrence: US)
  Receive Date: 20120731
  Receipt Date: 20131107
  Transmission Date: 20140711
  Serious: Yes (Hospitalization, Other)
  Sender: FDA-Public Use
  Company Number: US-009507513-1207USA009880

PATIENT
  Sex: Female

DRUGS (3)
  1. ZOCOR [Suspect]
     Dosage: 40 MG, QD
     Route: 048
  2. LIPITOR [Suspect]
     Dosage: 80 MG, QD
  3. PROAIR (ALBUTEROL SULFATE) [Suspect]
     Dosage: 2-3 PUFFS, UNK, QD

REACTIONS (6)
  - Cerebrovascular accident [Unknown]
  - Heart rate decreased [Unknown]
  - Blood cholesterol increased [Unknown]
  - High density lipoprotein abnormal [Unknown]
  - Drug ineffective [Unknown]
  - Low density lipoprotein increased [Unknown]
